FAERS Safety Report 24303917 (Version 1)
Quarter: 2024Q3

REPORT INFORMATION
  Report Type: Spontaneous
  Country: US (occurrence: US)
  Receive Date: 20240910
  Receipt Date: 20240910
  Transmission Date: 20241017
  Serious: No
  Sender: ABBVIE
  Company Number: US-ABBVIE-5914158

PATIENT
  Sex: Female
  Weight: 48 kg

DRUGS (8)
  1. BOTOX COSMETIC [Suspect]
     Active Substance: ONABOTULINUMTOXINA
     Indication: Skin wrinkling
     Dosage: TIME INTERVAL: AS NECESSARY: 24 TO 34 UNITS?EVERY FOUR TO SIX MONTHS
     Route: 030
     Dates: start: 2023, end: 2023
  2. BOTOX COSMETIC [Suspect]
     Active Substance: ONABOTULINUMTOXINA
     Indication: Skin wrinkling
     Dosage: TIME INTERVAL: AS NECESSARY
     Route: 030
     Dates: start: 20231125, end: 20231125
  3. BOTOX COSMETIC [Suspect]
     Active Substance: ONABOTULINUMTOXINA
     Indication: Skin wrinkling
     Dosage: TIME INTERVAL: AS NECESSARY
     Route: 030
     Dates: start: 20231209, end: 20231209
  4. BOTOX COSMETIC [Suspect]
     Active Substance: ONABOTULINUMTOXINA
     Indication: Skin wrinkling
     Dosage: TIME INTERVAL: AS NECESSARY: 24 TO 34 UNITS?EVERY FOUR TO SIX MONTHS
     Route: 030
     Dates: start: 2015, end: 2015
  5. SPIRONOLACTONE [Concomitant]
     Active Substance: SPIRONOLACTONE
     Indication: Hair disorder
  6. GABAPENTIN [Concomitant]
     Active Substance: GABAPENTIN
     Indication: Fibromyalgia
  7. MINOXIDIL [Concomitant]
     Active Substance: MINOXIDIL
     Indication: Hair disorder
  8. PREMPHASE [Concomitant]
     Active Substance: ESTROGENS, CONJUGATED\MEDROXYPROGESTERONE ACETATE
     Indication: Hormone therapy

REACTIONS (8)
  - Diplopia [Recovered/Resolved]
  - Visual impairment [Recovered/Resolved]
  - Eye pruritus [Recovered/Resolved]
  - Eyelid ptosis [Recovered/Resolved]
  - Vision blurred [Recovered/Resolved]
  - Suspected counterfeit product [Not Recovered/Not Resolved]
  - Photophobia [Recovered/Resolved]
  - Foreign body sensation in eyes [Recovered/Resolved]

NARRATIVE: CASE EVENT DATE: 20230101
